FAERS Safety Report 21471883 (Version 2)
Quarter: 2022Q4

REPORT INFORMATION
  Report Type: Spontaneous
  Country: EG (occurrence: SA)
  Receive Date: 20221018
  Receipt Date: 20221026
  Transmission Date: 20230112
  Serious: Yes (Hospitalization, Other)
  Sender: FDA-Public Use
  Company Number: EG-009507513-2210EGY002954

PATIENT
  Sex: Female

DRUGS (2)
  1. KEYTRUDA [Suspect]
     Active Substance: PEMBROLIZUMAB
     Indication: Colorectal cancer
     Dosage: 200 MILLIGRAM, Q3W
     Route: 042
     Dates: start: 20210821
  2. KEYTRUDA [Suspect]
     Active Substance: PEMBROLIZUMAB
     Dosage: 400 UNK
     Dates: start: 20220827

REACTIONS (6)
  - Myocardial infarction [Unknown]
  - Thrombosis [Not Recovered/Not Resolved]
  - Cardiac neoplasm unspecified [Unknown]
  - Hypothyroidism [Not Recovered/Not Resolved]
  - Haematological cyst [Unknown]
  - Benign neoplasm [Unknown]

NARRATIVE: CASE EVENT DATE: 20220101
